FAERS Safety Report 6882233-8 (Version None)
Quarter: 2010Q3

REPORT INFORMATION
  Report Type: 
  Country: None (occurrence: None)
  Receive Date: 20100729
  Receipt Date: 20100723
  Transmission Date: 20110219
  Serious: Yes (Death)
  Sender: FDA-Public Use
  Company Number: MX-ELI_LILLY_AND_COMPANY-MX201007006244

PATIENT
  Sex: Male

DRUGS (5)
  1. HUMULIN N [Suspect]
     Indication: DIABETES MELLITUS
     Dosage: 5 IU, DAILY (1/D)
     Route: 058
     Dates: start: 20100106
  2. METFORMIN HCL [Concomitant]
     Dosage: UNK, UNKNOWN
     Route: 065
  3. ASPIRINE PROTECT [Concomitant]
     Dosage: UNK, UNKNOWN
     Route: 065
  4. ISCOVER [Concomitant]
     Dosage: UNK, UNKNOWN
     Route: 065
  5. TAPAZOL [Concomitant]
     Dosage: UNK, UNKNOWN
     Route: 065

REACTIONS (1)
  - MYOCARDIAL INFARCTION [None]
